FAERS Safety Report 6195575-9 (Version None)
Quarter: 2009Q2

REPORT INFORMATION
  Report Type: 
  Country: None (occurrence: None)
  Receive Date: 20090519
  Receipt Date: 20090515
  Transmission Date: 20091009
  Serious: Yes (Death, Other)
  Sender: FDA-Public Use
  Company Number: PHHY2008JP24956

PATIENT
  Sex: Female
  Weight: 53 kg

DRUGS (8)
  1. ZOMETA [Suspect]
     Indication: METASTASES TO BONE
     Dosage: 4 MG/DAY
     Route: 042
     Dates: start: 20060801, end: 20061001
  2. FURTULON [Suspect]
     Indication: BREAST CANCER
     Dosage: 1200 MG/DAY
     Route: 048
     Dates: start: 20050613, end: 20070911
  3. ENDOXAN [Suspect]
     Indication: BREAST CANCER
     Dosage: 100 MG/DAY
     Route: 048
     Dates: start: 20050613, end: 20070821
  4. HYSRON [Suspect]
     Indication: BREAST CANCER
     Dosage: 600 MG/DAY
     Route: 048
  5. SELBEX [Concomitant]
     Dosage: 150 MG
     Route: 048
  6. CEPHARANTHIN [Concomitant]
     Dosage: 6 MG
     Route: 048
  7. GRAN [Concomitant]
     Dosage: 75 UG
     Route: 042
  8. OXYCONTIN [Concomitant]
     Dosage: 450 MG
     Route: 048

REACTIONS (19)
  - ABSCESS [None]
  - BONE DISORDER [None]
  - BREAST CANCER RECURRENT [None]
  - DENTAL DISCOMFORT [None]
  - FACE OEDEMA [None]
  - FACIAL PAIN [None]
  - FAILURE OF IMPLANT [None]
  - FISTULA DISCHARGE [None]
  - HYPOAESTHESIA ORAL [None]
  - JAW OPERATION [None]
  - MEDICAL DEVICE REMOVAL [None]
  - METASTASES TO PLEURA [None]
  - ORAL CAVITY FISTULA [None]
  - OSTEOMYELITIS [None]
  - OSTEONECROSIS [None]
  - PAIN IN JAW [None]
  - PRIMARY SEQUESTRUM [None]
  - RESORPTION BONE INCREASED [None]
  - SWELLING [None]
